FAERS Safety Report 10705043 (Version 1)
Quarter: 2015Q1

REPORT INFORMATION
  Report Type: Spontaneous
  Country: US (occurrence: US)
  Receive Date: 20150112
  Receipt Date: 20150112
  Transmission Date: 20150721
  Serious: Yes (Death, Other)
  Sender: FDA-Public Use
  Company Number: US-TEVA-533086USA

PATIENT

DRUGS (5)
  1. CYCLOPHOSPHAMIDE. [Suspect]
     Active Substance: CYCLOPHOSPHAMIDE
     Indication: CHRONIC LYMPHOCYTIC LEUKAEMIA
     Dosage: 250 MG/M2 ON DAYS 2-4 OF COURSE 1 AND ON DAYS 1-3 OF COURSES 2-6
     Route: 042
  2. GRANULOCYTE MACROPHAGE COLONY STIMULATING FACTOR [Suspect]
     Active Substance: GRANULOCYTE-MACROPHAGE COLONY-STIMULATING FACTOR
     Indication: CHRONIC LYMPHOCYTIC LEUKAEMIA
     Dosage: 250 MICROG/M2 ON DAYS 1 AND 5-11 OF COURSE 1 AND ON DAYS 1 AND 4-10 OF COURSES 2-6
     Route: 058
  3. RITUXIMAB [Suspect]
     Active Substance: RITUXIMAB
     Indication: CHRONIC LYMPHOCYTIC LEUKAEMIA
     Dosage: 500 MG/M2 ON DAY 1 DURING COURSES 2-6
     Route: 042
  4. FLUDARABINE [Suspect]
     Active Substance: FLUDARABINE PHOSPHATE
     Indication: CHRONIC LYMPHOCYTIC LEUKAEMIA
     Dosage: 25 MG/M2 ON DAYS 2-4 OF COURSE 1 AND ON DAYS 1-3 OF COURSES 2-6
     Route: 042
  5. RITUXIMAB [Suspect]
     Active Substance: RITUXIMAB
     Indication: CHRONIC LYMPHOCYTIC LEUKAEMIA
     Dosage: 375 MG/M2 ON DAY 1 OF COURSE 1
     Route: 042

REACTIONS (5)
  - Infection [Fatal]
  - Pyrexia [Fatal]
  - Respiratory failure [Fatal]
  - Coma [Fatal]
  - Nuclear magnetic resonance imaging brain abnormal [None]
